FAERS Safety Report 21130940 (Version 1)
Quarter: 2022Q3

REPORT INFORMATION
  Report Type: Spontaneous
  Country: US (occurrence: US)
  Receive Date: 20220726
  Receipt Date: 20220726
  Transmission Date: 20221026
  Serious: No
  Sender: FDA-Public Use
  Company Number: US-ELI_LILLY_AND_COMPANY-US202207010588

PATIENT
  Sex: Female

DRUGS (2)
  1. VERZENIO [Suspect]
     Active Substance: ABEMACICLIB
     Indication: Product used for unknown indication
     Dosage: UNK UNK, UNKNOWN
     Route: 065
     Dates: start: 202202
  2. VERZENIO [Suspect]
     Active Substance: ABEMACICLIB
     Dosage: 50 MG, BID
     Route: 065
     Dates: start: 202206

REACTIONS (11)
  - Macrocytosis [Unknown]
  - Red blood cell elliptocytes present [Unknown]
  - Blood urea increased [Unknown]
  - Feeling abnormal [Unknown]
  - Bone pain [Unknown]
  - Arthralgia [Unknown]
  - Alopecia [Unknown]
  - Neutropenia [Unknown]
  - White blood cell count decreased [Unknown]
  - Diarrhoea [Recovering/Resolving]
  - Blood creatinine increased [Unknown]
